FAERS Safety Report 4535735-3 (Version None)
Quarter: 2004Q4

REPORT INFORMATION
  Report Type: 
  Country: None (occurrence: None)
  Receive Date: 20041223
  Receipt Date: 20040120
  Transmission Date: 20050328
  Serious: No
  Sender: FDA-Public Use
  Company Number: US-GLAXOSMITHKLINE-A0494260A

PATIENT
  Age: 33 Year
  Sex: Female

DRUGS (1)
  1. FLONASE [Suspect]
     Dosage: 2SPR PER DAY
     Route: 045
     Dates: start: 20030901, end: 20031001

REACTIONS (6)
  - DYSPHAGIA [None]
  - DYSPNOEA [None]
  - HYPERSENSITIVITY [None]
  - NASAL CONGESTION [None]
  - POSTNASAL DRIP [None]
  - SPEECH DISORDER [None]
